FAERS Safety Report 5083926-8 (Version None)
Quarter: 2006Q3

REPORT INFORMATION
  Report Type: 
  Country: None (occurrence: None)
  Receive Date: 20060727
  Receipt Date: 20060405
  Transmission Date: 20061208
  Serious: Yes (Other)
  Sender: FDA-Public Use
  Company Number: 2006048967

PATIENT
  Age: 62 Year
  Sex: Female
  Weight: 100.2449 kg

DRUGS (9)
  1. LYRICA [Suspect]
     Indication: DIABETIC NEUROPATHY
     Dosage: 150 MG (75 MG, 2 IN 1 D)
     Dates: start: 20060301, end: 20060101
  2. NEURONTIN [Concomitant]
  3. FELDENE [Concomitant]
  4. ACCUPRIL [Concomitant]
  5. NEXIUM [Concomitant]
  6. BUMEX [Concomitant]
  7. ACTOS [Concomitant]
  8. AMBIEN [Concomitant]
  9. ZAROXOLYN [Concomitant]

REACTIONS (2)
  - FEELING ABNORMAL [None]
  - HYPOGLYCAEMIA [None]
